FAERS Safety Report 24400187 (Version 1)
Quarter: 2024Q4

REPORT INFORMATION
  Report Type: Spontaneous
  Country: MY (occurrence: MY)
  Receive Date: 20241005
  Receipt Date: 20241005
  Transmission Date: 20250114
  Serious: Yes (Hospitalization, Other)
  Sender: AMICI PHARMACEUTICALS
  Company Number: MY-AMICI-2024AMILIT00009

PATIENT
  Age: 68 Year
  Sex: Male

DRUGS (1)
  1. DICLOFENAC [Suspect]
     Active Substance: DICLOFENAC
     Indication: Renal colic
     Route: 030

REACTIONS (2)
  - Cutaneous vasculitis [Recovered/Resolved with Sequelae]
  - Cyanosis [Recovered/Resolved with Sequelae]
